FAERS Safety Report 19812892 (Version 1)
Quarter: 2021Q3

REPORT INFORMATION
  Report Type: Not Available
  Country: ES (occurrence: ES)
  Receive Date: 20210910
  Receipt Date: 20210910
  Transmission Date: 20211014
  Serious: Yes (Other)
  Sender: FDA-Public Use
  Company Number: ES-AKORN-171027

PATIENT
  Age: 48 Year
  Sex: Female

DRUGS (1)
  1. PHENYLEPHRINE HCL [Suspect]
     Active Substance: PHENYLEPHRINE HYDROCHLORIDE

REACTIONS (5)
  - Face oedema [Recovered/Resolved]
  - Drug hypersensitivity [Not Recovered/Not Resolved]
  - Erythema [Recovered/Resolved]
  - Cross sensitivity reaction [Not Recovered/Not Resolved]
  - Rash maculo-papular [Recovered/Resolved]
